FAERS Safety Report 17836541 (Version 2)
Quarter: 2020Q3

REPORT INFORMATION
  Report Type: Report from Study
  Country: GB (occurrence: GB)
  Receive Date: 20200528
  Receipt Date: 20200713
  Transmission Date: 20201103
  Serious: Yes (Other)
  Sender: FDA-Public Use
  Company Number: NVSC2020GB140757

PATIENT
  Age: 17 Year
  Sex: Female
  Weight: 59.2 kg

DRUGS (25)
  1. DEXAMETHASONE. [Concomitant]
     Active Substance: DEXAMETHASONE
     Indication: PRODUCT USED FOR UNKNOWN INDICATION
     Dosage: 2 MG AM AND 1.5 MG PM
     Route: 048
  2. CYCLIZINE [Concomitant]
     Active Substance: CYCLIZINE
     Indication: NAUSEA
     Dosage: 50 MG TDS PRN
     Route: 048
  3. SEVREDOL [Concomitant]
     Active Substance: MORPHINE
     Indication: PAIN
     Dosage: 20 MG, 4 HOURLY PRN
     Route: 048
  4. TAFINLAR [Suspect]
     Active Substance: DABRAFENIB MESYLATE
     Dosage: 150 MG, BID
     Route: 048
     Dates: start: 20200520
  5. LEVETIRACETAM. [Concomitant]
     Active Substance: LEVETIRACETAM
     Indication: EPILEPSY
     Dosage: 500 MG, BID
     Route: 048
  6. CETIRIZINE [Concomitant]
     Active Substance: CETIRIZINE HYDROCHLORIDE
     Indication: PRURITUS
     Dosage: 1 OT, QD
     Route: 065
  7. TAFINLAR [Suspect]
     Active Substance: DABRAFENIB MESYLATE
     Indication: GLIOBLASTOMA MULTIFORME
     Dosage: 150 MG, BID
     Route: 048
     Dates: start: 20200504, end: 20200518
  8. LANSOPRAZOLE. [Concomitant]
     Active Substance: LANSOPRAZOLE
     Indication: GASTRIC DISORDER
     Dosage: 30 MG, QD
     Route: 048
  9. CYCLIZINE [Concomitant]
     Active Substance: CYCLIZINE
     Indication: PAIN
  10. PREGABALIN. [Concomitant]
     Active Substance: PREGABALIN
     Indication: PAIN
     Dosage: 50 MG, QD
     Route: 048
  11. MOVICOL [Concomitant]
     Active Substance: POLYETHYLENE GLYCOL 3350\POTASSIUM CHLORIDE\SODIUM BICARBONATE\SODIUM CHLORIDE
     Indication: CONSTIPATION
     Dosage: 2 DF, BID (SACHETES)
     Route: 048
  12. MIDAZOLAM. [Concomitant]
     Active Substance: MIDAZOLAM
     Indication: PAIN
     Dosage: 7.5 MG, QD
     Route: 042
     Dates: start: 20200504
  13. DIAMORPHINE [Concomitant]
     Active Substance: DIAMORPHINE
     Indication: PAIN
     Dosage: 2.5 MG, 4 HOURLY PRN
     Route: 002
  14. GLYCERIN SUPPOSITORIES [Concomitant]
     Indication: CONSTIPATION
     Dosage: UNK, PRN
     Route: 065
  15. MORPHINE [Concomitant]
     Active Substance: MORPHINE
     Indication: PAIN
     Dosage: 180?200 MG, 24 HOURS
     Route: 042
     Dates: start: 20200501
  16. NALOXEGOL [Concomitant]
     Active Substance: NALOXEGOL
     Indication: CONSTIPATION
     Dosage: 25 MG, QD OR BID
     Route: 048
  17. SODIUM PICOSULFATE [Concomitant]
     Active Substance: SODIUM PICOSULFATE
     Indication: CONSTIPATION
     Dosage: 5 MG, QD
     Route: 048
  18. DIPROBASE [Concomitant]
     Active Substance: CHLOROCRESOL
     Indication: DRY SKIN
     Dosage: QDS PRN
     Route: 062
  19. ONDANSETRON [Concomitant]
     Active Substance: ONDANSETRON
     Indication: NAUSEA
     Dosage: 8 MG, BID (PRN CURRENTLY NOT NEEDED)
     Route: 048
  20. LEVOMEPROMAZINE [Concomitant]
     Active Substance: LEVOMEPROMAZINE
     Indication: NAUSEA
     Dosage: 3 MG, BID (PRN CURRENTLY NOT NEEDED)
     Route: 048
  21. LEVOMEPROMAZINE [Concomitant]
     Active Substance: LEVOMEPROMAZINE
     Indication: VOMITING
  22. KETAMINE [Concomitant]
     Active Substance: KETAMINE
     Indication: PAIN
     Dosage: 30 MG, QD
     Route: 042
     Dates: start: 20200508
  23. ONDANSETRON [Concomitant]
     Active Substance: ONDANSETRON
     Indication: VOMITING
  24. CYCLIZINE [Concomitant]
     Active Substance: CYCLIZINE
     Indication: VOMITING
     Dosage: 150 MG, QD
     Route: 042
     Dates: start: 20200501
  25. SEVREDOL [Concomitant]
     Active Substance: MORPHINE
     Dosage: 25 MG, 4 HOURLY PRN
     Route: 048

REACTIONS (3)
  - Troponin increased [Unknown]
  - Electrocardiogram ST segment elevation [Unknown]
  - Electrocardiogram T wave peaked [Unknown]

NARRATIVE: CASE EVENT DATE: 20200518
